FAERS Safety Report 5272870-9 (Version None)
Quarter: 2007Q1

REPORT INFORMATION
  Report Type: 
  Country: None (occurrence: None)
  Receive Date: 20070316
  Receipt Date: 20070305
  Transmission Date: 20070707
  Serious: Yes (Death)
  Sender: FDA-Public Use
  Company Number: 2007RR-06170

PATIENT
  Age: 77 Year
  Sex: Male

DRUGS (22)
  1. ASPIRIN [Suspect]
  2. ATORVASTATIN CALCIUM [Suspect]
  3. BECLOMETHASONE DIPROPIONATE [Suspect]
     Dosage: QD, RESPIRATORY
     Route: 055
  4. COMBIVENT [Suspect]
     Indication: CHRONIC OBSTRUCTIVE PULMONARY DISEASE
     Dosage: QID, RESPIRATORY
     Route: 055
     Dates: start: 20030617, end: 20040513
  5. DEXAMETHASONE TAB [Suspect]
  6. DILTIAZEM [Suspect]
     Dosage: QD
  7. DOSULEPIN(DOSULEPIN) [Suspect]
     Dosage: QD
  8. FRUMIL (AMILORIDE HYDROCHLORIDE, FUROSEMIDE) [Suspect]
  9. FRUSEMIDE(FUROSEMIDE) UNKNOWN [Suspect]
  10. GAVISCON [Suspect]
     Dosage: QD
  11. LACTULOSE [Suspect]
  12. LANSOPRAZOLE [Suspect]
     Dosage: QD
  13. METOCLOPRAMIDE [Suspect]
     Dosage: QD
  14. NITROGLYCERIN [Suspect]
  15. NOZINAN (LEVOMEPRPOMAZINE, METHOTRIMEPRAZINE, TUBOCURARINE) [Suspect]
  16. OXYCODONE HCL [Suspect]
     Dosage: QD
  17. OXYGEN(OXYGEN) [Suspect]
     Dosage: RESPIRATORY
     Route: 055
  18. SALBUTAMOL(SALBUTAMOL) UNKNOWN [Suspect]
     Dosage: QD, RESPIRATORY
     Route: 055
  19. SPIRIVA 18 MICROGRAM INHALATION POWDER, HARD CAPSULE(TIOTROPIUM BROMID [Suspect]
     Indication: CHRONIC OBSTRUCTIVE PULMONARY DISEASE
     Dosage: 18 UG, RESPIRATORY
     Route: 055
     Dates: start: 20030617
  20. SPIRONOLACTONE [Suspect]
  21. SYMBICORT [Suspect]
     Dosage: RESPIRATORY
     Route: 055
  22. TEMAZEPAM [Suspect]
     Dosage: QD

REACTIONS (2)
  - LUNG NEOPLASM MALIGNANT [None]
  - MESOTHELIOMA [None]
